FAERS Safety Report 8235052-4 (Version None)
Quarter: 2012Q1

REPORT INFORMATION
  Report Type: 
  Country: None (occurrence: None)
  Receive Date: 20120326
  Receipt Date: 20120320
  Transmission Date: 20120608
  Serious: Yes (Hospitalization)
  Sender: FDA-Public Use
  Company Number: GB-GLAXOSMITHKLINE-B0647355A

PATIENT
  Sex: Female
  Weight: 93.5 kg

DRUGS (15)
  1. SANDO-K [Concomitant]
     Route: 048
     Dates: start: 20100405
  2. COLCHICINE [Concomitant]
     Route: 048
     Dates: start: 20100406
  3. DOMPERIDONE [Concomitant]
     Dates: start: 20100405
  4. NYSTATIN [Concomitant]
     Route: 061
  5. ASPIRIN [Concomitant]
     Dosage: 75MG PER DAY
     Route: 048
  6. AMITRIPTYLINE HCL [Concomitant]
     Dosage: 25MG AT NIGHT
  7. LAPATINIB [Suspect]
     Indication: BREAST CANCER METASTATIC
     Dosage: 1250MG PER DAY
     Route: 048
     Dates: start: 20100330
  8. SODIUM DOCUSATE [Concomitant]
     Dosage: 200MG TWICE PER DAY
     Route: 048
  9. ENOXAPARIN SODIUM [Concomitant]
     Route: 058
     Dates: start: 20100403
  10. FLUCONAZOLE [Concomitant]
     Route: 048
     Dates: start: 20100404, end: 20100411
  11. CALCIUM CARBONATE [Concomitant]
     Route: 048
  12. SIMVASTATIN [Concomitant]
     Dosage: 40MG AT NIGHT
     Route: 048
  13. METOCLOPRAMIDE [Concomitant]
     Dosage: 20MG AS REQUIRED
     Route: 048
  14. DOCETAXEL [Suspect]
     Indication: BREAST CANCER METASTATIC
     Dosage: 145MG CYCLIC
     Route: 042
     Dates: start: 20100330
  15. FUROSEMIDE [Concomitant]
     Dosage: 40MG TWICE PER DAY
     Route: 048

REACTIONS (4)
  - NAUSEA [None]
  - LETHARGY [None]
  - ARTHRALGIA [None]
  - FATIGUE [None]
